FAERS Safety Report 19031416 (Version 1)
Quarter: 2021Q1

REPORT INFORMATION
  Report Type: Spontaneous
  Country: US (occurrence: US)
  Receive Date: 20210318
  Receipt Date: 20210318
  Transmission Date: 20210420
  Serious: Yes (Other)
  Sender: FDA-Public Use
  Company Number: None

PATIENT
  Age: 73 Year
  Sex: Female

DRUGS (11)
  1. LEVOTHYROXINE. [Concomitant]
     Active Substance: LEVOTHYROXINE
  2. OPSUMIT [Suspect]
     Active Substance: MACITENTAN
     Indication: PULMONARY HYPERTENSION
     Route: 048
     Dates: start: 20200114
  3. SENNA [Concomitant]
     Active Substance: SENNA LEAF\SENNOSIDES\SENNOSIDES A AND B
  4. MVI [Concomitant]
     Active Substance: VITAMINS
  5. LACTULOSE. [Concomitant]
     Active Substance: LACTULOSE
  6. SPIRONOLACTONE. [Concomitant]
     Active Substance: SPIRONOLACTONE
  7. WARFARIN [Concomitant]
     Active Substance: WARFARIN
  8. FUROSEMIDE. [Concomitant]
     Active Substance: FUROSEMIDE
  9. VITAMIN C [Concomitant]
     Active Substance: ASCORBIC ACID
  10. DEXTRIN\WHEAT [Concomitant]
     Active Substance: ICODEXTRIN\WHEAT
  11. SERTRALINE [Concomitant]
     Active Substance: SERTRALINE HYDROCHLORIDE

REACTIONS (2)
  - Abdominal pain [None]
  - Constipation [None]

NARRATIVE: CASE EVENT DATE: 20210219
